FAERS Safety Report 4368691-1 (Version None)
Quarter: 2004Q2

REPORT INFORMATION
  Report Type: 
  Country: None (occurrence: None)
  Receive Date: 20040601
  Receipt Date: 20040601
  Transmission Date: 20050107
  Serious: Yes (Death)
  Sender: FDA-Public Use
  Company Number: None

PATIENT
  Sex: Male
  Weight: 82.7 kg

DRUGS (4)
  1. CARBOPLATIN [Suspect]
     Dosage: 660 MG
     Dates: start: 20040311
  2. CELEBREX [Suspect]
     Dosage: 11200 MG
     Dates: start: 20040324
  3. GEMCITABINE [Suspect]
     Dosage: 4000 MG
     Dates: start: 20040311, end: 20040318
  4. ZILEUTON [Suspect]
     Dosage: 19200 MG
     Dates: end: 20040329

REACTIONS (1)
  - DEATH [None]
